FAERS Safety Report 7990959-8 (Version None)
Quarter: 2011Q4

REPORT INFORMATION
  Report Type: 
  Country: None (occurrence: None)
  Receive Date: 20111215
  Receipt Date: 20111128
  Transmission Date: 20120403
  Serious: Yes (Other)
  Sender: FDA-Public Use
  Company Number: 2011DK0355

PATIENT
  Age: 12 Year
  Sex: Male

DRUGS (1)
  1. ORFADIN [Suspect]
     Indication: TYROSINAEMIA
     Dosage: (TWICE DAILY)
     Dates: start: 19981215

REACTIONS (3)
  - AMINO ACID LEVEL INCREASED [None]
  - EPILEPSY [None]
  - COGNITIVE DISORDER [None]
